FAERS Safety Report 9015694 (Version 1)
Quarter: 2013Q1

REPORT INFORMATION
  Report Type: Spontaneous
  Country: US (occurrence: None)
  Receive Date: 20130103
  Receipt Date: 20130103
  Transmission Date: 20140127
  Serious: Yes (Hospitalization)
  Sender: FDA-Public Use
  Company Number: DKLU1087475

PATIENT
  Age: 9 Month
  Sex: Female

DRUGS (1)
  1. ONFI [Suspect]
     Indication: DEPRESSION
     Route: 063

REACTIONS (4)
  - Respiratory disorder [None]
  - Decreased appetite [None]
  - Exposure during breast feeding [None]
  - Weight gain poor [None]
